FAERS Safety Report 6497309-7 (Version None)
Quarter: 2009Q4

REPORT INFORMATION
  Report Type: 
  Country: None (occurrence: None)
  Receive Date: 20091215
  Receipt Date: 20090901
  Transmission Date: 20100525
  Serious: No
  Sender: FDA-Public Use
  Company Number: A0805363A

PATIENT
  Age: 71 Year
  Sex: Male

DRUGS (5)
  1. AVODART [Suspect]
     Indication: BENIGN PROSTATIC HYPERPLASIA
     Dosage: .5MG IN THE MORNING
     Route: 048
     Dates: start: 20090801
  2. VYTORIN [Suspect]
  3. MICARDIS [Concomitant]
  4. GLIMEPIRIDE [Concomitant]
  5. MULTI-VITAMIN [Concomitant]

REACTIONS (1)
  - DYSPEPSIA [None]
